FAERS Safety Report 4517655-3 (Version None)
Quarter: 2004Q4

REPORT INFORMATION
  Report Type: 
  Country: None (occurrence: None)
  Receive Date: 20041203
  Receipt Date: 20041122
  Transmission Date: 20050328
  Serious: No
  Sender: FDA-Public Use
  Company Number: FR-JNJFOC-20041104117

PATIENT
  Age: 73 Year
  Sex: Male

DRUGS (10)
  1. PROPULSID [Suspect]
     Route: 049
     Dates: start: 20030618, end: 20040708
  2. PROPULSID [Suspect]
     Route: 049
     Dates: start: 20030618, end: 20040708
  3. ASPIRIN [Concomitant]
  4. RIVOTRIL [Concomitant]
  5. DEROXAT [Concomitant]
  6. DIFF-K [Concomitant]
  7. XANAX [Concomitant]
  8. NEURONTIN [Concomitant]
  9. OMEPRAZOLE [Concomitant]
  10. FORLAX [Concomitant]

REACTIONS (1)
  - NO ADVERSE DRUG EFFECT [None]
